FAERS Safety Report 19003993 (Version 1)
Quarter: 2021Q1

REPORT INFORMATION
  Report Type: Spontaneous
  Country: JP (occurrence: JP)
  Receive Date: 20210312
  Receipt Date: 20210312
  Transmission Date: 20210420
  Serious: Yes (Hospitalization)
  Sender: FDA-Public Use
  Company Number: JP-JNJFOC-20201239290

PATIENT
  Age: 78 Year
  Sex: Male
  Weight: 52.6 kg

DRUGS (3)
  1. GONADORELIN ACETATE [Concomitant]
     Active Substance: GONADORELIN ACETATE
     Dosage: DOSE UNKNOWN
     Route: 065
  2. ERLEADA [Suspect]
     Active Substance: APALUTAMIDE
     Indication: PROSTATE CANCER
     Route: 048
     Dates: start: 20201104, end: 20201211
  3. GONAX [Suspect]
     Active Substance: DEGARELIX
     Indication: PROSTATE CANCER
     Route: 058
     Dates: start: 20201202, end: 20201202

REACTIONS (2)
  - Drug eruption [Recovered/Resolved]
  - Agranulocytosis [Recovered/Resolved]

NARRATIVE: CASE EVENT DATE: 20201204
